FAERS Safety Report 18801250 (Version 2)
Quarter: 2021Q1

REPORT INFORMATION
  Report Type: Spontaneous
  Country: GB (occurrence: GB)
  Receive Date: 20210128
  Receipt Date: 20210203
  Transmission Date: 20210419
  Serious: Yes (Life-Threatening, Hospitalization, Other)
  Sender: FDA-Public Use
  Company Number: GB-009507513-2101GBR010961

PATIENT
  Age: 19 Year
  Sex: Female
  Weight: 56 kg

DRUGS (2)
  1. RIGEVIDON [ETHINYL ESTRADIOL\LEVONORGESTREL] [Suspect]
     Active Substance: ETHINYL ESTRADIOL\LEVONORGESTREL
     Indication: CONTRACEPTION
     Dosage: 150MCG/30MCG
     Dates: start: 20150101, end: 20170612
  2. ETONOGESTREL IMPLANT? UNKNOWN [Suspect]
     Active Substance: ETONOGESTREL
     Indication: CONTRACEPTION
     Dosage: UNK
     Dates: start: 20190127, end: 20201010

REACTIONS (3)
  - Loss of consciousness [Unknown]
  - Depression suicidal [Recovered/Resolved with Sequelae]
  - Migraine with aura [Recovered/Resolved]

NARRATIVE: CASE EVENT DATE: 20161004
